FAERS Safety Report 11131296 (Version 1)
Quarter: 2015Q2

REPORT INFORMATION
  Report Type: Spontaneous
  Country: GR (occurrence: GR)
  Receive Date: 20150522
  Receipt Date: 20150522
  Transmission Date: 20150821
  Serious: Yes (Hospitalization)
  Sender: FDA-Public Use
  Company Number: GR-JNJFOC-20150513269

PATIENT
  Age: 3 Year
  Sex: Male

DRUGS (2)
  1. REMICADE [Suspect]
     Active Substance: INFLIXIMAB
     Indication: COLITIS ULCERATIVE
     Route: 042
     Dates: start: 201412
  2. REMICADE [Suspect]
     Active Substance: INFLIXIMAB
     Indication: COLITIS ULCERATIVE
     Route: 042
     Dates: start: 201505, end: 201505

REACTIONS (5)
  - Pyrexia [Unknown]
  - Product use issue [Unknown]
  - Gastroenteritis [Unknown]
  - Haemorrhage [Unknown]
  - Dehydration [Unknown]

NARRATIVE: CASE EVENT DATE: 2014
